FAERS Safety Report 4946340-9 (Version None)
Quarter: 2006Q1

REPORT INFORMATION
  Report Type: 
  Country: None (occurrence: None)
  Receive Date: 20060316
  Receipt Date: 20060316
  Transmission Date: 20060701
  Serious: Yes (Hospitalization)
  Sender: FDA-Public Use
  Company Number: None

PATIENT
  Age: 51 Year
  Sex: Female
  Weight: 72.5755 kg

DRUGS (4)
  1. LEXAPRO [Suspect]
     Indication: ANXIETY
     Dosage: 1 DAILY PO
     Route: 048
     Dates: start: 20050507, end: 20050507
  2. LEXAPRO [Suspect]
     Indication: PANIC ATTACK
     Dosage: 1 DAILY PO
     Route: 048
     Dates: start: 20050507, end: 20050507
  3. CLONAZEPAM [Concomitant]
  4. PROZAC [Concomitant]

REACTIONS (12)
  - ABDOMINAL PAIN [None]
  - ANAPHYLACTIC REACTION [None]
  - ANXIETY [None]
  - CHEST DISCOMFORT [None]
  - CHEST PAIN [None]
  - DYSPNOEA [None]
  - MUSCLE TWITCHING [None]
  - PANIC ATTACK [None]
  - PRURITUS [None]
  - RASH [None]
  - THINKING ABNORMAL [None]
  - TREMOR [None]
